FAERS Safety Report 8316404-0 (Version None)
Quarter: 2012Q2

REPORT INFORMATION
  Report Type: 
  Country: None (occurrence: None)
  Receive Date: 20120425
  Receipt Date: 20120425
  Transmission Date: 20120825
  Serious: No
  Sender: FDA-Public Use
  Company Number: None

PATIENT
  Age: 49 Year
  Sex: Female
  Weight: 68.0396 kg

DRUGS (1)
  1. LYRICA [Suspect]
     Indication: FIBROMYALGIA
     Dosage: STARTED 50 MG 2X DAILY - THEN 100 MG 2 X DAILY - THEN 75MG 2X DAILY
     Dates: start: 20111001, end: 20120301

REACTIONS (2)
  - ARTHRALGIA [None]
  - JOINT LOCK [None]
